FAERS Safety Report 7273343-4 (Version None)
Quarter: 2011Q1

REPORT INFORMATION
  Report Type: 
  Country: None (occurrence: None)
  Receive Date: 20110128
  Receipt Date: 20110119
  Transmission Date: 20110831
  Serious: Yes (Other)
  Sender: FDA-Public Use
  Company Number: LTI2011A00006

PATIENT
  Age: 61 Year
  Sex: Female

DRUGS (8)
  1. ACTOS [Suspect]
     Indication: TYPE 2 DIABETES MELLITUS
     Dosage: 30 MG (20 MG, 1 IN 1 D), ORAL
     Route: 048
     Dates: start: 20090518, end: 20100802
  2. RILMENIDINE (RILMENIDINE) [Concomitant]
  3. AMLODIPINE [Concomitant]
  4. CELIPROLOL (CELIPROLOL) [Concomitant]
  5. CRESTOR [Concomitant]
  6. GLUCOVANCE [Concomitant]
  7. PRITORPLUS 80 (HYDROCHLOROTHIAZIDE, TELMISARTAN) [Concomitant]
  8. VICTOZA [Concomitant]

REACTIONS (2)
  - BLADDER TRANSITIONAL CELL CARCINOMA [None]
  - HAEMATURIA [None]
